FAERS Safety Report 24254854 (Version 1)
Quarter: 2024Q3

REPORT INFORMATION
  Report Type: Spontaneous
  Country: US (occurrence: None)
  Receive Date: 20240826
  Receipt Date: 20240826
  Transmission Date: 20241017
  Serious: Yes (Other)
  Sender: Public
  Company Number: None

PATIENT
  Age: 85 Year
  Sex: Female
  Weight: 51.75 kg

DRUGS (9)
  1. XIIDRA [Suspect]
     Active Substance: LIFITEGRAST
     Indication: Dry eye
     Route: 047
     Dates: start: 20240803, end: 20240811
  2. CLONAZEPAM [Concomitant]
     Active Substance: CLONAZEPAM
  3. VITAMIN D3 [Concomitant]
     Active Substance: CHOLECALCIFEROL
  4. FOLIC ACID [Concomitant]
     Active Substance: FOLIC ACID
  5. VITAMIN B [Concomitant]
     Active Substance: VITAMIN B
  6. FISH OIL [Concomitant]
     Active Substance: FISH OIL
  7. PROGESTERONE [Concomitant]
     Active Substance: PROGESTERONE
  8. B-Est [Concomitant]
  9. CALCIUM\MAGNESIUM [Concomitant]
     Active Substance: CALCIUM\MAGNESIUM

REACTIONS (4)
  - Taste disorder [None]
  - Oropharyngeal pain [None]
  - Cough [None]
  - Laryngitis [None]

NARRATIVE: CASE EVENT DATE: 20240811
